FAERS Safety Report 8824783 (Version 1)
Quarter: 2012Q4

REPORT INFORMATION
  Report Type: 
  Country: DE (occurrence: DE)
  Receive Date: 20121004
  Receipt Date: 20121004
  Transmission Date: 20130627
  Serious: Yes (Hospitalization)
  Sender: FDA-Public Use
  Company Number: PHHY2012DE072114

PATIENT
  Age: 72 Year
  Sex: Male
  Weight: 85 kg

DRUGS (2)
  1. AFINITOR [Suspect]
     Indication: METASTATIC RENAL CELL CARCINOMA
     Dosage: 10 mg, per day
     Route: 048
     Dates: start: 20120806, end: 20120816
  2. EXEMESTANE [Concomitant]

REACTIONS (2)
  - General physical health deterioration [Recovering/Resolving]
  - Pulmonary embolism [Recovering/Resolving]
